FAERS Safety Report 5754396-9 (Version None)
Quarter: 2008Q2

REPORT INFORMATION
  Report Type: 
  Country: None (occurrence: None)
  Receive Date: 20080530
  Receipt Date: 20080519
  Transmission Date: 20081010
  Serious: Yes (Hospitalization)
  Sender: FDA-Public Use
  Company Number: US-AMGEN-US276869

PATIENT
  Sex: Male
  Weight: 49.89 kg

DRUGS (6)
  1. CINACALCET [Suspect]
     Indication: HYPERPARATHYROIDISM SECONDARY
     Route: 048
     Dates: start: 20071106, end: 20080504
  2. NEURONTIN [Concomitant]
     Route: 048
  3. LANTUS [Concomitant]
     Route: 058
  4. COUMADIN [Concomitant]
  5. ATIVAN [Concomitant]
     Route: 048
  6. CALCIUM ACETATE [Concomitant]
     Route: 048

REACTIONS (6)
  - ABDOMINAL PAIN UPPER [None]
  - ARTHRALGIA [None]
  - HYPOGLYCAEMIA [None]
  - NAUSEA [None]
  - PANCREATITIS CHRONIC [None]
  - VOMITING [None]
